FAERS Safety Report 4791492-7 (Version None)
Quarter: 2005Q4

REPORT INFORMATION
  Report Type: 
  Country: None (occurrence: None)
  Receive Date: 20051007
  Receipt Date: 20041025
  Transmission Date: 20060501
  Serious: No
  Sender: FDA-Public Use
  Company Number: US-BRISTOL-MYERS SQUIBB COMPANY-12744165

PATIENT
  Age: 65 Year
  Sex: Female
  Weight: 79 kg

DRUGS (6)
  1. AVAPRO [Suspect]
     Indication: HYPERTENSION
     Route: 048
     Dates: start: 20040413
  2. HYDROCHLOROTHIAZIDE [Suspect]
  3. ZOCOR [Concomitant]
  4. DOXEPIN HCL [Concomitant]
  5. MULTI-VITAMIN [Concomitant]
  6. CALCIUM GLUCONATE [Concomitant]

REACTIONS (3)
  - PARAESTHESIA ORAL [None]
  - SWELLING FACE [None]
  - URTICARIA [None]
